FAERS Safety Report 13580394 (Version 1)
Quarter: 2017Q2

REPORT INFORMATION
  Report Type: Spontaneous
  Country: FI (occurrence: FI)
  Receive Date: 20170525
  Receipt Date: 20170525
  Transmission Date: 20170830
  Serious: Yes (Other)
  Sender: FDA-Public Use
  Company Number: FI-ORION CORPORATION ORION PHARMA-TREX2015-0657

PATIENT
  Age: 36 Year
  Sex: Male
  Weight: 106.4 kg

DRUGS (14)
  1. SOMAC [Concomitant]
     Active Substance: PANTOPRAZOLE SODIUM
     Route: 065
  2. LOSARTAN ORION [Concomitant]
     Route: 065
  3. BISOPROLOL RATIOPHARM [Concomitant]
     Active Substance: BISOPROLOL
     Route: 065
  4. EMGESAN [Concomitant]
     Dosage: 1-2 TIMES A DAY AS NEEDED
     Route: 065
  5. TREXAN [Suspect]
     Active Substance: METHOTREXATE SODIUM
     Indication: ARTHROPATHY
     Route: 065
     Dates: start: 199808
  6. BURANA [Concomitant]
     Active Substance: IBUPROFEN
     Dosage: 1-3 TIMES A DAY AS NEEDED
     Route: 065
  7. PREDNISOLON [Concomitant]
     Active Substance: PREDNISOLONE
     Route: 065
  8. KALCIPOS-D [Concomitant]
     Active Substance: CALCIUM CARBONATE\CHOLECALCIFEROL
     Dosage: 1-2
     Route: 065
  9. TREXAN [Suspect]
     Active Substance: METHOTREXATE SODIUM
     Route: 065
     Dates: start: 2002
  10. FOLIC ACID. [Concomitant]
     Active Substance: FOLIC ACID
     Indication: VITAMIN SUPPLEMENTATION
     Route: 065
  11. ARTELAC [Concomitant]
     Active Substance: HYPROMELLOSES
     Route: 065
  12. LACRI-LUBE [Concomitant]
     Route: 065
  13. TREXAN [Suspect]
     Active Substance: METHOTREXATE SODIUM
     Route: 065
     Dates: end: 20150812
  14. HUMIRA [Suspect]
     Active Substance: ADALIMUMAB
     Indication: ARTHROPATHY
     Route: 065
     Dates: start: 20060502, end: 20150812

REACTIONS (4)
  - Nausea [Unknown]
  - Abdominal discomfort [Unknown]
  - Immune thrombocytopenic purpura [Unknown]
  - Lymphopenia [Unknown]

NARRATIVE: CASE EVENT DATE: 199808
